FAERS Safety Report 13057832 (Version 1)
Quarter: 2016Q4

REPORT INFORMATION
  Report Type: Spontaneous
  Country: US (occurrence: US)
  Receive Date: 20161223
  Receipt Date: 20161223
  Transmission Date: 20170207
  Serious: No
  Sender: FDA-Public Use
  Company Number: US-ASTRAZENECA-2016SF29678

PATIENT

DRUGS (4)
  1. CEFTIN [Concomitant]
     Active Substance: CEFUROXIME AXETIL
  2. BRILINTA [Suspect]
     Active Substance: TICAGRELOR
     Route: 048
  3. CITRON [Concomitant]
  4. BRILINTA [Suspect]
     Active Substance: TICAGRELOR
     Route: 048

REACTIONS (1)
  - Bronchitis [Unknown]

NARRATIVE: CASE EVENT DATE: 20161204
